FAERS Safety Report 7789125-0 (Version None)
Quarter: 2011Q3

REPORT INFORMATION
  Report Type: 
  Country: None (occurrence: None)
  Receive Date: 20110930
  Receipt Date: 20110921
  Transmission Date: 20111222
  Serious: Yes (Hospitalization)
  Sender: FDA-Public Use
  Company Number: US-JNJFOC-20110909136

PATIENT
  Sex: Male
  Weight: 72.58 kg

DRUGS (5)
  1. INVEGA SUSTENNA [Suspect]
     Route: 030
     Dates: start: 20110908, end: 20110908
  2. ADVAIR DISKUS 100/50 [Concomitant]
     Indication: WHEEZING
     Route: 055
  3. INVEGA SUSTENNA [Suspect]
     Route: 030
     Dates: start: 20100101, end: 20100101
  4. DEPAKOTE [Concomitant]
     Route: 048
     Dates: start: 20110101
  5. INVEGA SUSTENNA [Suspect]
     Indication: SCHIZOAFFECTIVE DISORDER
     Route: 030
     Dates: start: 20110915

REACTIONS (3)
  - TREATMENT NONCOMPLIANCE [None]
  - BLEPHAROSPASM [None]
  - DIZZINESS [None]
